FAERS Safety Report 6442617-9 (Version None)
Quarter: 2009Q4

REPORT INFORMATION
  Report Type: 
  Country: None (occurrence: None)
  Receive Date: 20091117
  Receipt Date: 20091109
  Transmission Date: 20100525
  Serious: Yes (Other)
  Sender: FDA-Public Use
  Company Number: US-JNJFOC-20091102989

PATIENT
  Sex: Female
  Weight: 54.43 kg

DRUGS (1)
  1. ORTHO TRI-CYCLEN LO [Suspect]
     Indication: CONTRACEPTION
     Route: 048
     Dates: start: 20050101, end: 20090801

REACTIONS (4)
  - ACNE [None]
  - HYPOTHYROIDISM [None]
  - MENSTRUATION DELAYED [None]
  - OFF LABEL USE [None]
